FAERS Safety Report 14726632 (Version 1)
Quarter: 2018Q2

REPORT INFORMATION
  Report Type: Spontaneous
  Country: US (occurrence: US)
  Receive Date: 20180406
  Receipt Date: 20180406
  Transmission Date: 20180711
  Serious: No
  Sender: FDA-Public Use
  Company Number: US-009507513-1803USA011733

PATIENT
  Age: 62 Year
  Sex: Male

DRUGS (5)
  1. GINGER. [Concomitant]
     Active Substance: GINGER
  2. ASPIRIN. [Concomitant]
     Active Substance: ASPIRIN
  3. LISINOPRIL. [Concomitant]
     Active Substance: LISINOPRIL
  4. OXYGEN. [Concomitant]
     Active Substance: OXYGEN
  5. ZEPATIER [Suspect]
     Active Substance: ELBASVIR\GRAZOPREVIR
     Indication: HEPATITIS C
     Dosage: 1 DF, QD, ONE TABLET ONCE DAILY
     Route: 048

REACTIONS (1)
  - Headache [Recovered/Resolved]
